FAERS Safety Report 7814891-5 (Version None)
Quarter: 2011Q4

REPORT INFORMATION
  Report Type: 
  Country: None (occurrence: None)
  Receive Date: 20111014
  Receipt Date: 20111011
  Transmission Date: 20120403
  Serious: Yes (Life-Threatening, Hospitalization)
  Sender: FDA-Public Use
  Company Number: JP-B.I. PHARMACEUTICALS,INC./RIDGEFIELD-2011-BP-18110NB

PATIENT
  Sex: Female
  Weight: 33 kg

DRUGS (9)
  1. MENEST [Concomitant]
     Indication: PARKINSON'S DISEASE
     Dosage: 300 MG
     Route: 048
     Dates: start: 20090101
  2. MUCOSTA [Concomitant]
     Dosage: 300 MG
     Route: 048
  3. SINGULAIR [Concomitant]
     Dosage: 10 MG
     Route: 048
  4. PRAMIPEXOLE DIHYDROCHLORIDE [Suspect]
     Indication: PARKINSON'S DISEASE
     Dosage: 0.75 MG
     Route: 048
     Dates: start: 20090101, end: 20110718
  5. LENDORMIN D TABLETS [Concomitant]
     Dosage: 0.25 MG
     Route: 048
  6. ACETAMINOPHEN [Concomitant]
     Route: 048
  7. PURSENNID [Concomitant]
     Route: 048
  8. SEPAZON [Suspect]
     Dosage: 1.5 MG
     Route: 048
     Dates: start: 20110401, end: 20110718
  9. EBASTEL OD [Concomitant]
     Dosage: 10 MG
     Route: 048

REACTIONS (5)
  - STUPOR [None]
  - SEPTIC SHOCK [None]
  - RESPIRATORY ARREST [None]
  - PNEUMONIA STAPHYLOCOCCAL [None]
  - PNEUMONIA ASPIRATION [None]
